FAERS Safety Report 5213061-7 (Version None)
Quarter: 2007Q1

REPORT INFORMATION
  Report Type: 
  Country: None (occurrence: None)
  Receive Date: 20070119
  Receipt Date: 20060720
  Transmission Date: 20070707
  Serious: No
  Sender: FDA-Public Use
  Company Number: US-GLAXOSMITHKLINE-A0612991A

PATIENT
  Age: 69 Year
  Sex: Female
  Weight: 98.6 kg

DRUGS (8)
  1. HYCAMTIN [Suspect]
     Dosage: 4U WEEKLY
     Route: 042
  2. POTASSIUM ACETATE [Concomitant]
  3. LESCOL [Concomitant]
  4. HYDROCHLOROTHIAZIDE [Concomitant]
  5. LISINOPRIL [Concomitant]
  6. PREVACID [Concomitant]
  7. VALIUM [Concomitant]
  8. ZOFRAN [Concomitant]

REACTIONS (1)
  - TUMOUR MARKER INCREASED [None]
